FAERS Safety Report 25152758 (Version 1)
Quarter: 2025Q2

REPORT INFORMATION
  Report Type: Spontaneous
  Country: IR (occurrence: IR)
  Receive Date: 20250403
  Receipt Date: 20250403
  Transmission Date: 20250716
  Serious: Yes (Other)
  Sender: NOVITIUM PHARMA
  Company Number: IR-NOVITIUMPHARMA-2025IRNVP00798

PATIENT
  Sex: Male

DRUGS (1)
  1. DEXAMETHASONE [Suspect]
     Active Substance: DEXAMETHASONE
     Indication: Product used for unknown indication

REACTIONS (2)
  - Disseminated tuberculosis [Unknown]
  - Intentional product misuse [Unknown]
